FAERS Safety Report 5032736-6 (Version None)
Quarter: 2006Q2

REPORT INFORMATION
  Report Type: 
  Country: None (occurrence: None)
  Receive Date: 20060620
  Receipt Date: 20060620
  Transmission Date: 20061013
  Serious: Yes (Hospitalization)
  Sender: FDA-Public Use
  Company Number: None

PATIENT
  Sex: Female
  Weight: 95.2554 kg

DRUGS (1)
  1. OMNIPAQUE 180 [Suspect]
     Indication: SPINAL MYELOGRAM
     Dosage: 12 ML ONE DOSE SUBARACHNOID
     Dates: start: 20060606

REACTIONS (2)
  - MENINGITIS CHEMICAL [None]
  - POST PROCEDURAL COMPLICATION [None]
